FAERS Safety Report 8620599-9 (Version None)
Quarter: 2012Q3

REPORT INFORMATION
  Report Type: 
  Country: None (occurrence: None)
  Receive Date: 20120816
  Receipt Date: 20120816
  Transmission Date: 20120928
  Serious: Yes (Hospitalization)
  Sender: FDA-Public Use
  Company Number: None

PATIENT
  Sex: Female
  Weight: 71.4 kg

DRUGS (2)
  1. AFINITOR [Suspect]
     Dosage: 230 MG
     Dates: start: 20120806
  2. OCTREOTIDE ACETATE [Suspect]
     Dosage: 20MG
     Dates: start: 20120806

REACTIONS (4)
  - CARDIAC FAILURE CONGESTIVE [None]
  - DYSPNOEA [None]
  - CHEST PAIN [None]
  - PNEUMONITIS [None]
